FAERS Safety Report 10868413 (Version 1)
Quarter: 2015Q1

REPORT INFORMATION
  Report Type: Spontaneous
  Country: US (occurrence: US)
  Receive Date: 20150225
  Receipt Date: 20150225
  Transmission Date: 20150721
  Serious: Yes (Other)
  Sender: FDA-Public Use
  Company Number: US-BAYER-2015-025499

PATIENT
  Sex: Female

DRUGS (1)
  1. SKYLA [Suspect]
     Active Substance: LEVONORGESTREL
     Dosage: 14 MCG/24HR, CONT
     Route: 015
     Dates: start: 201502

REACTIONS (4)
  - Post procedural haemorrhage [None]
  - Abdominal pain lower [None]
  - Procedural pain [None]
  - Vaginal haemorrhage [None]

NARRATIVE: CASE EVENT DATE: 201502
